FAERS Safety Report 11349215 (Version 1)
Quarter: 2015Q3

REPORT INFORMATION
  Report Type: Spontaneous
  Country: US (occurrence: None)
  Receive Date: 20150805
  Receipt Date: 20150805
  Transmission Date: 20151125
  Serious: No
  Sender: FDA-Public Use
  Company Number: None

PATIENT
  Age: 60 Year
  Sex: Male

DRUGS (10)
  1. ASPIRIN. [Concomitant]
     Active Substance: ASPIRIN
  2. ROSUVASTATIN [Concomitant]
     Active Substance: ROSUVASTATIN
  3. CLOPIDOGREL [Concomitant]
     Active Substance: CLOPIDOGREL BISULFATE
  4. METFORMIN [Concomitant]
     Active Substance: METFORMIN HYDROCHLORIDE
  5. INSULIN [Concomitant]
     Active Substance: INSULIN NOS
  6. LEVOTHYROXINE. [Concomitant]
     Active Substance: LEVOTHYROXINE
  7. SITAGLIPTIN [Concomitant]
     Active Substance: SITAGLIPTIN
  8. GLYBURIDE. [Concomitant]
     Active Substance: GLYBURIDE
  9. METOPROLOL [Concomitant]
     Active Substance: METOPROLOL
  10. LISINOPRIL. [Suspect]
     Active Substance: LISINOPRIL
     Indication: HYPERTENSION
     Route: 048
     Dates: end: 20140703

REACTIONS (3)
  - Dyspnoea [None]
  - Stridor [None]
  - Laryngeal oedema [None]

NARRATIVE: CASE EVENT DATE: 20140703
